FAERS Safety Report 6134011-5 (Version None)
Quarter: 2009Q1

REPORT INFORMATION
  Report Type: 
  Country: None (occurrence: None)
  Receive Date: 20090326
  Receipt Date: 20090317
  Transmission Date: 20090719
  Serious: Yes (Other)
  Sender: FDA-Public Use
  Company Number: US-AMGEN-US332155

PATIENT
  Sex: Male
  Weight: 113.5 kg

DRUGS (2)
  1. NPLATE [Suspect]
     Indication: IDIOPATHIC THROMBOCYTOPENIC PURPURA
     Route: 065
     Dates: start: 20080929, end: 20081124
  2. PREDNISONE [Concomitant]

REACTIONS (5)
  - DEEP VEIN THROMBOSIS [None]
  - DYSPNOEA [None]
  - HAEMOGLOBIN INCREASED [None]
  - OEDEMA [None]
  - PLATELET COUNT INCREASED [None]
